FAERS Safety Report 7912647-6 (Version None)
Quarter: 2011Q4

REPORT INFORMATION
  Report Type: 
  Country: None (occurrence: None)
  Receive Date: 20111114
  Receipt Date: 20111102
  Transmission Date: 20120403
  Serious: Yes (Other)
  Sender: FDA-Public Use
  Company Number: CA-ROCHE-1008048

PATIENT
  Sex: Female

DRUGS (11)
  1. XOLAIR [Suspect]
     Indication: ASTHMA
     Route: 058
     Dates: start: 20100601
  2. SINGULAIR [Concomitant]
  3. ANTIBIOTICS NOS [Concomitant]
     Dates: start: 20110823
  4. ADVAIR DISKUS 100/50 [Concomitant]
     Dosage: 500/50
  5. CORTISONE ACETATE [Concomitant]
  6. VENTOLIN [Concomitant]
  7. PREDNISONE TAB [Concomitant]
     Route: 048
     Dates: start: 20110826, end: 20110829
  8. ALVESCO [Concomitant]
  9. XOLAIR [Suspect]
     Route: 058
     Dates: start: 20110718
  10. PREDNISONE TAB [Concomitant]
     Dates: start: 20110601
  11. PREDNISONE TAB [Concomitant]
     Dates: start: 20110822, end: 20110825

REACTIONS (11)
  - ASTHMA [None]
  - TOOTH ABSCESS [None]
  - UPPER RESPIRATORY TRACT INFECTION [None]
  - PRODUCTIVE COUGH [None]
  - FATIGUE [None]
  - HOT FLUSH [None]
  - LUNG INFECTION [None]
  - MALAISE [None]
  - SLEEP DISORDER [None]
  - OEDEMA PERIPHERAL [None]
  - THERAPEUTIC RESPONSE DECREASED [None]
